FAERS Safety Report 10688722 (Version 2)
Quarter: 2015Q1

REPORT INFORMATION
  Report Type: Spontaneous
  Country: NL (occurrence: NL)
  Receive Date: 20150102
  Receipt Date: 20150102
  Transmission Date: 20150720
  Serious: Yes (Other)
  Sender: FDA-Public Use
  Company Number: 2014SP003876

PATIENT
  Age: 35 Year
  Sex: Female

DRUGS (3)
  1. PRIADEL /00033702/ [Concomitant]
     Active Substance: LITHIUM CARBONATE
     Dates: start: 2007
  2. LORAZEPAM. [Concomitant]
     Active Substance: LORAZEPAM
     Dates: start: 20141101
  3. LATUDA [Suspect]
     Active Substance: LURASIDONE HYDROCHLORIDE
     Indication: BIPOLAR I DISORDER
     Route: 048
     Dates: start: 20141107, end: 20141217

REACTIONS (5)
  - Hallucination, visual [Not Recovered/Not Resolved]
  - Restlessness [Recovered/Resolved]
  - Headache [Not Recovered/Not Resolved]
  - Photosensitivity reaction [Not Recovered/Not Resolved]
  - Off label use [None]

NARRATIVE: CASE EVENT DATE: 20141114
